FAERS Safety Report 7328652-7 (Version None)
Quarter: 2011Q1

REPORT INFORMATION
  Report Type: 
  Country: None (occurrence: None)
  Receive Date: 20110303
  Receipt Date: 20110225
  Transmission Date: 20110831
  Serious: Yes (Life-Threatening, Hospitalization, Other)
  Sender: FDA-Public Use
  Company Number: JP-ROCHE-710553

PATIENT
  Sex: Female
  Weight: 40 kg

DRUGS (20)
  1. TOCILIZUMAB [Suspect]
     Route: 041
     Dates: start: 20091007, end: 20091007
  2. TOCILIZUMAB [Suspect]
     Route: 041
     Dates: start: 20100210, end: 20100210
  3. TOCILIZUMAB [Suspect]
     Route: 041
     Dates: start: 20100310, end: 20100310
  4. TOCILIZUMAB [Suspect]
     Route: 041
     Dates: start: 20090812, end: 20090812
  5. TOCILIZUMAB [Suspect]
     Route: 041
     Dates: start: 20100407, end: 20100407
  6. VOLTAREN [Concomitant]
     Dosage: INTERCALATING AGENT
     Route: 054
  7. CINALONG [Concomitant]
     Route: 048
  8. TOCILIZUMAB [Suspect]
     Route: 041
     Dates: start: 20090909, end: 20090909
  9. TOCILIZUMAB [Suspect]
     Route: 041
     Dates: start: 20100113, end: 20100113
  10. TOCILIZUMAB [Suspect]
     Route: 041
     Dates: start: 20100602, end: 20100602
  11. VOLTAREN [Concomitant]
     Dosage: THE FIRST 12.5-25 MG
     Route: 054
  12. KIPRES [Concomitant]
     Route: 048
     Dates: start: 20100113
  13. TOCILIZUMAB [Suspect]
     Indication: RHEUMATOID ARTHRITIS
     Route: 041
     Dates: start: 20090717, end: 20090717
  14. BLOPRESS [Concomitant]
     Dosage: DRUG REPORTED:CANDESARTAN CILEXETIL
     Route: 048
  15. KINEDAK [Concomitant]
     Dosage: FORM: PERORAL AGENT
     Route: 048
     Dates: end: 20100628
  16. URSO 250 [Concomitant]
     Route: 048
  17. TOCILIZUMAB [Suspect]
     Route: 041
     Dates: start: 20091111, end: 20091111
  18. TOCILIZUMAB [Suspect]
     Route: 041
     Dates: start: 20091209, end: 20091209
  19. ZYRTEC [Concomitant]
     Route: 048
     Dates: end: 20100602
  20. TOCILIZUMAB [Suspect]
     Route: 041
     Dates: start: 20100506, end: 20100506

REACTIONS (5)
  - SEPSIS [None]
  - CELLULITIS [None]
  - NEUTROPHIL COUNT DECREASED [None]
  - OCCULT BLOOD [None]
  - PNEUMOCOCCAL BACTERAEMIA [None]
